FAERS Safety Report 6727638-0 (Version None)
Quarter: 2010Q2

REPORT INFORMATION
  Report Type: 
  Country: None (occurrence: None)
  Receive Date: 20100512
  Receipt Date: 20100428
  Transmission Date: 20101027
  Serious: Yes (Hospitalization)
  Sender: FDA-Public Use
  Company Number: 581144

PATIENT
  Age: 41 Year
  Sex: Female

DRUGS (4)
  1. CYTARABINE [Suspect]
  2. FLUDARABINE PHOSPHATE [Suspect]
  3. DASATINIB [Suspect]
     Dosage: 140MG MILLIGRAM(S)
  4. FILGRASTIM [Suspect]

REACTIONS (3)
  - FEBRILE NEUTROPENIA [None]
  - PULMONARY MASS [None]
  - RASH [None]
